FAERS Safety Report 8119861-8 (Version None)
Quarter: 2012Q1

REPORT INFORMATION
  Report Type: 
  Country: None (occurrence: None)
  Receive Date: 20120207
  Receipt Date: 20120202
  Transmission Date: 20120608
  Serious: Yes (Hospitalization, Other)
  Sender: FDA-Public Use
  Company Number: BR-PFIZER INC-2011280455

PATIENT
  Age: 57 Year
  Sex: Female
  Weight: 55 kg

DRUGS (5)
  1. REDUCLIM [Concomitant]
     Indication: MENOPAUSE
     Dosage: 2.25 MG, 1X/DAY
     Dates: start: 20050101
  2. ALEXA [Concomitant]
     Indication: DEPRESSION
     Dosage: 150 MG, 1X/DAY
     Dates: start: 20100101
  3. VARENICLINE TARTRATE [Suspect]
     Indication: TOBACCO USER
     Dosage: 0.5 MG, 1X/DAY
     Route: 048
     Dates: start: 20111104, end: 20111101
  4. ALENTHUS XR [Concomitant]
     Indication: DEPRESSION
     Dosage: 150 MG, 1X/DAY
  5. VARENICLINE TARTRATE [Suspect]
     Dosage: 1 MG, 2X/DAY
     Route: 048
     Dates: start: 20111101

REACTIONS (8)
  - PRESYNCOPE [None]
  - WEIGHT INCREASED [None]
  - PLASTIC SURGERY [None]
  - VOMITING [None]
  - TREMOR [None]
  - HYPOTENSION [None]
  - NAUSEA [None]
  - MIGRAINE [None]
